FAERS Safety Report 19386953 (Version 2)
Quarter: 2021Q2

REPORT INFORMATION
  Report Type: Spontaneous
  Country: BG (occurrence: BG)
  Receive Date: 20210607
  Receipt Date: 20210617
  Transmission Date: 20210717
  Serious: Yes (Death, Other)
  Sender: FDA-Public Use
  Company Number: BG-INCYTE CORPORATION-2020IN007852

PATIENT

DRUGS (1)
  1. JAKAVI [Suspect]
     Active Substance: RUXOLITINIB
     Indication: MYELOFIBROSIS
     Dosage: 30 MG, DAILY (PER OS)
     Route: 048
     Dates: start: 20171012

REACTIONS (11)
  - C-reactive protein increased [Recovering/Resolving]
  - Lymphocytosis [Recovering/Resolving]
  - Anaemia [Recovering/Resolving]
  - Death [Fatal]
  - Blood alkaline phosphatase increased [Recovering/Resolving]
  - Fibrosis [Unknown]
  - Thrombocytosis [Unknown]
  - Basophilia [Recovering/Resolving]
  - Aspartate aminotransferase increased [Recovering/Resolving]
  - Blood creatinine increased [Recovering/Resolving]
  - Leukocytosis [Recovering/Resolving]

NARRATIVE: CASE EVENT DATE: 20200601
